FAERS Safety Report 7831507-2 (Version None)
Quarter: 2011Q4

REPORT INFORMATION
  Report Type: 
  Country: None (occurrence: None)
  Receive Date: 20111021
  Receipt Date: 20111021
  Transmission Date: 20120403
  Serious: Yes (Life-Threatening, Other)
  Sender: FDA-Public Use
  Company Number: None

PATIENT
  Age: 65 Year
  Sex: Female
  Weight: 52.163 kg

DRUGS (3)
  1. LEVOFLOXACIN [Suspect]
     Indication: VAGINAL INFECTION
     Dosage: ONE TABLET -250 MG.- EVERY DAY
     Route: 048
     Dates: start: 20111001, end: 20111008
  2. LEVOFLOXACIN [Suspect]
     Indication: VAGINAL DISCHARGE
     Dosage: ONE TABLET -250 MG.- EVERY DAY
     Route: 048
     Dates: start: 20111001, end: 20111008
  3. XXXXXXXXXX [Concomitant]
     Dosage: XXXXXXXX

REACTIONS (5)
  - SUICIDAL IDEATION [None]
  - OEDEMA PERIPHERAL [None]
  - PRODUCT SUBSTITUTION ISSUE [None]
  - LYMPHOEDEMA [None]
  - INJECTION SITE HAEMATOMA [None]
